FAERS Safety Report 17559856 (Version 2)
Quarter: 2020Q2

REPORT INFORMATION
  Report Type: Spontaneous
  Country: GR (occurrence: GR)
  Receive Date: 20200319
  Receipt Date: 20200421
  Transmission Date: 20200713
  Serious: Yes (Disabling)
  Sender: FDA-Public Use
  Company Number: GR-NOVOPROD-718167

PATIENT
  Age: 82 Year
  Sex: Female

DRUGS (1)
  1. NOVOMIX 30 FLEXPEN [Suspect]
     Active Substance: INSULIN ASPART
     Indication: DIABETES MELLITUS
     Dosage: UNK
     Route: 058

REACTIONS (5)
  - Hyperglycaemia [Recovered/Resolved]
  - Deafness [Not Recovered/Not Resolved]
  - Insomnia [Recovered/Resolved]
  - Renal disorder [Unknown]
  - Hypoglycaemia [Recovered/Resolved]
